FAERS Safety Report 7840677-1 (Version None)
Quarter: 2011Q4

REPORT INFORMATION
  Report Type: 
  Country: None (occurrence: None)
  Receive Date: 20111025
  Receipt Date: 20111020
  Transmission Date: 20120403
  Serious: Yes (Death, Hospitalization)
  Sender: FDA-Public Use
  Company Number: SE-BRISTOL-MYERS SQUIBB COMPANY-16064966

PATIENT
  Age: 59 Year
  Sex: Male

DRUGS (8)
  1. FLUCONAZOLE [Concomitant]
  2. PREDNISOLONE [Concomitant]
  3. CLARITHROMYCIN [Suspect]
     Dosage: TABS
     Route: 048
     Dates: start: 20110519, end: 20110530
  4. AMIKACIN SULFATE [Suspect]
     Dates: start: 20110501, end: 20110530
  5. COLCHICINE [Suspect]
     Indication: GOUT
     Dosage: TABS
     Route: 048
     Dates: start: 20110427, end: 20110530
  6. LYRICA [Concomitant]
     Dosage: HARD CAPSULE
  7. WARFARIN SODIUM [Concomitant]
     Dosage: TABS
  8. LEVOFLOXACIN [Suspect]
     Dates: start: 20110519, end: 20110530

REACTIONS (8)
  - DIARRHOEA [None]
  - PANCYTOPENIA [None]
  - SEPSIS [None]
  - CARDIAC ARREST [None]
  - TACHYCARDIA [None]
  - HYPOTENSION [None]
  - BACK PAIN [None]
  - DYSPNOEA [None]
